FAERS Safety Report 14123678 (Version 1)
Quarter: 2017Q4

REPORT INFORMATION
  Report Type: Spontaneous
  Country: US (occurrence: None)
  Receive Date: 20171025
  Receipt Date: 20171025
  Transmission Date: 20180321
  Serious: Yes (Hospitalization)
  Sender: FDA-Public Use
  Company Number: None

PATIENT
  Age: 61 Year
  Sex: Female

DRUGS (9)
  1. WARFARIN [Concomitant]
     Active Substance: WARFARIN
  2. METOPROLOL. [Concomitant]
     Active Substance: METOPROLOL
  3. LASIX [Concomitant]
     Active Substance: FUROSEMIDE
  4. PRAVASTATIN. [Suspect]
     Active Substance: PRAVASTATIN
  5. OXYCODONE [Concomitant]
     Active Substance: OXYCODONE
  6. DOK [Concomitant]
     Active Substance: DOCUSATE SODIUM
  7. ZOFRAN [Concomitant]
     Active Substance: ONDANSETRON HYDROCHLORIDE
  8. FENTANYL. [Concomitant]
     Active Substance: FENTANYL
  9. IBRANCE [Suspect]
     Active Substance: PALBOCICLIB
     Indication: PAIN
     Route: 048
     Dates: start: 20170209

REACTIONS (1)
  - Hospitalisation [None]

NARRATIVE: CASE EVENT DATE: 20171018
